FAERS Safety Report 6107284-2 (Version None)
Quarter: 2009Q1

REPORT INFORMATION
  Report Type: 
  Country: None (occurrence: None)
  Receive Date: 20090309
  Receipt Date: 20090302
  Transmission Date: 20090719
  Serious: Yes (Death)
  Sender: FDA-Public Use
  Company Number: FR-CELGENEUS-056-20785-09030087

PATIENT
  Age: 85 Year
  Sex: Male

DRUGS (1)
  1. THALIDOMIDE [Suspect]
     Route: 048
     Dates: end: 20081007

REACTIONS (2)
  - LUNG DISORDER [None]
  - PARKINSON'S DISEASE [None]
